FAERS Safety Report 10052056 (Version 1)
Quarter: 2014Q2

REPORT INFORMATION
  Report Type: Spontaneous
  Country: GB (occurrence: GB)
  Receive Date: 20140402
  Receipt Date: 20140402
  Transmission Date: 20141212
  Serious: Yes (Hospitalization)
  Sender: FDA-Public Use
  Company Number: GB-BRISTOL-MYERS SQUIBB COMPANY-20552733

PATIENT
  Age: 35 Year
  Sex: Female

DRUGS (1)
  1. KENALOG INJ [Suspect]
     Indication: CARPAL TUNNEL SYNDROME
     Route: 014
     Dates: start: 20140124

REACTIONS (1)
  - Arterial spasm [Not Recovered/Not Resolved]
